FAERS Safety Report 5300783-2 (Version None)
Quarter: 2007Q2

REPORT INFORMATION
  Report Type: 
  Country: None (occurrence: None)
  Receive Date: 20070418
  Receipt Date: 20070411
  Transmission Date: 20071010
  Serious: Yes (Other)
  Sender: FDA-Public Use
  Company Number: 2007UW07136

PATIENT
  Age: 55 Year
  Sex: Female

DRUGS (1)
  1. FASLODEX [Suspect]
     Indication: BREAST CANCER FEMALE
     Route: 030

REACTIONS (4)
  - HEPATIC PAIN [None]
  - HEPATOMEGALY [None]
  - PAIN [None]
  - TUMOUR FLARE [None]
